FAERS Safety Report 18640899 (Version 3)
Quarter: 2021Q1

REPORT INFORMATION
  Report Type: Spontaneous
  Country: ES (occurrence: ES)
  Receive Date: 20201221
  Receipt Date: 20210226
  Transmission Date: 20210419
  Serious: Yes (Death, Other)
  Sender: FDA-Public Use
  Company Number: ES-SA-2020SA362365

PATIENT
  Age: 2 Year
  Sex: Female

DRUGS (5)
  1. ALDURAZYME [Suspect]
     Active Substance: LARONIDASE
     Dosage: 1200 UNITS
     Route: 065
     Dates: start: 20191226
  2. ALDURAZYME [Suspect]
     Active Substance: LARONIDASE
     Dosage: 1300 UNITS
     Route: 065
     Dates: start: 20200507
  3. BUDESONIDE. [Concomitant]
     Active Substance: BUDESONIDE
     Indication: BRONCHITIS
     Dosage: UNK
     Route: 065
  4. ALDURAZYME [Suspect]
     Active Substance: LARONIDASE
     Indication: MUCOPOLYSACCHARIDOSIS I
     Dosage: 1100 UNITS
     Route: 065
     Dates: start: 20191114
  5. SINGULAIR [Concomitant]
     Active Substance: MONTELUKAST SODIUM
     Indication: BRONCHITIS
     Dosage: UNK
     Route: 065

REACTIONS (1)
  - Complications of bone marrow transplant [Fatal]
